FAERS Safety Report 15997304 (Version 2)
Quarter: 2019Q1

REPORT INFORMATION
  Report Type: Report from Study
  Country: US (occurrence: US)
  Receive Date: 20190222
  Receipt Date: 20190314
  Transmission Date: 20190418
  Serious: No
  Sender: FDA-Public Use
  Company Number: PHEH2019US007892

PATIENT
  Sex: Female
  Weight: 112.49 kg

DRUGS (1)
  1. COSENTYX [Suspect]
     Active Substance: SECUKINUMAB
     Indication: PSORIATIC ARTHROPATHY
     Route: 058
     Dates: start: 201901

REACTIONS (3)
  - Breast pain [Unknown]
  - Peripheral swelling [Recovering/Resolving]
  - Paraesthesia [Recovering/Resolving]
